FAERS Safety Report 7397099-X (Version None)
Quarter: 2011Q2

REPORT INFORMATION
  Report Type: 
  Country: None (occurrence: None)
  Receive Date: 20110406
  Receipt Date: 20110330
  Transmission Date: 20111010
  Serious: Yes (Hospitalization)
  Sender: FDA-Public Use
  Company Number: A0907386A

PATIENT
  Age: 82 Year
  Sex: Male

DRUGS (13)
  1. ADVAIR DISKUS 100/50 [Suspect]
     Indication: CHRONIC OBSTRUCTIVE PULMONARY DISEASE
     Dosage: 1PUFF TWICE PER DAY
     Route: 055
     Dates: start: 20080801
  2. METOPROLOL [Concomitant]
  3. VITAMIN B COMPLEX CAP [Concomitant]
  4. OMEPRAZOLE [Concomitant]
  5. CITALOPRAM HYDROBROMIDE [Concomitant]
  6. VITAMIN D [Concomitant]
  7. MAGNESIUM [Concomitant]
  8. LASIX [Concomitant]
  9. CRESTOR [Concomitant]
  10. CENTRUM [Concomitant]
  11. OXYGEN [Concomitant]
  12. SPIRIVA [Concomitant]
  13. POTASSIUM [Concomitant]

REACTIONS (2)
  - COUGH [None]
  - PNEUMONIA [None]
